FAERS Safety Report 4341104-1 (Version None)
Quarter: 2004Q2

REPORT INFORMATION
  Report Type: 
  Country: None (occurrence: None)
  Receive Date: 20040419
  Receipt Date: 20040407
  Transmission Date: 20050107
  Serious: Yes (Hospitalization)
  Sender: FDA-Public Use
  Company Number: PHRM2004FR01463

PATIENT
  Age: 68 Year
  Sex: Male
  Weight: 65 kg

DRUGS (3)
  1. ESIDRIX [Suspect]
     Dosage: 12.5 MG/DAY
     Route: 048
     Dates: end: 20040228
  2. ALDACTONE [Suspect]
     Dosage: 25 MG, QD
     Route: 048
     Dates: end: 20040228
  3. LASIX [Suspect]
     Dosage: 250 MG/DAY
     Route: 048
     Dates: end: 20040228

REACTIONS (3)
  - BLOOD CREATININE INCREASED [None]
  - DEHYDRATION [None]
  - RENAL FAILURE ACUTE [None]
